FAERS Safety Report 8978191 (Version 2)
Quarter: 2013Q1

REPORT INFORMATION
  Report Type: Spontaneous
  Country: IL (occurrence: IL)
  Receive Date: 20121221
  Receipt Date: 20130222
  Transmission Date: 20140127
  Serious: Yes (Death, Hospitalization)
  Sender: FDA-Public Use
  Company Number: IL-PFIZER INC-2012321010

PATIENT
  Age: 48 Year
  Sex: Female

DRUGS (4)
  1. XALKORI [Suspect]
     Dosage: 250 MG, 2X/DAY
     Route: 048
     Dates: start: 201210
  2. XALKORI [Suspect]
     Dosage: 250 MG, 1X/DAY
  3. AERIUS [Concomitant]
     Indication: RHINITIS ALLERGIC
  4. CIPRALEX [Concomitant]
     Indication: ANXIETY

REACTIONS (2)
  - Cerebrovascular accident [Fatal]
  - Pneumonia [Recovered/Resolved]
